FAERS Safety Report 21094379 (Version 1)
Quarter: 2022Q3

REPORT INFORMATION
  Report Type: Spontaneous
  Country: US (occurrence: None)
  Receive Date: 20220716
  Receipt Date: 20220716
  Transmission Date: 20221027
  Serious: Yes (Hospitalization)
  Sender: FDA-Public Use
  Company Number: None

PATIENT
  Age: 75 Year
  Weight: 65.8 kg

DRUGS (5)
  1. RADIUM RA-223 DICHLORIDE [Suspect]
     Active Substance: RADIUM RA-223 DICHLORIDE
     Dates: end: 20220617
  2. Extended Release Morphine [Concomitant]
  3. LUPRON [Concomitant]
     Active Substance: LEUPROLIDE ACETATE
  4. OXYCODONE [Concomitant]
     Active Substance: OXYCODONE
  5. ZOMETA [Concomitant]
     Active Substance: ZOLEDRONIC ACID

REACTIONS (3)
  - Muscular weakness [None]
  - Pain [None]
  - COVID-19 [None]

NARRATIVE: CASE EVENT DATE: 20220627
